FAERS Safety Report 20535431 (Version 2)
Quarter: 2022Q2

REPORT INFORMATION
  Report Type: Spontaneous
  Country: US (occurrence: US)
  Receive Date: 20220302
  Receipt Date: 20220503
  Transmission Date: 20220720
  Serious: No
  Sender: FDA-Public Use
  Company Number: US-SA-SAC20220224001028

PATIENT
  Age: 68 Year
  Sex: Female

DRUGS (2)
  1. KEVZARA [Suspect]
     Active Substance: SARILUMAB
     Indication: Rheumatoid arthritis
     Dosage: 200 MG, QOW
     Route: 058
     Dates: start: 20211203, end: 20220422
  2. ORENCIA [Concomitant]
     Active Substance: ABATACEPT

REACTIONS (6)
  - Hypertension [Unknown]
  - Lip swelling [Recovered/Resolved]
  - Lip swelling [Unknown]
  - Sensation of foreign body [Unknown]
  - Blood triglycerides increased [Unknown]
  - Blood cholesterol increased [Unknown]

NARRATIVE: CASE EVENT DATE: 20211201
